FAERS Safety Report 25050952 (Version 1)
Quarter: 2025Q1

REPORT INFORMATION
  Report Type: Spontaneous
  Country: JP (occurrence: JP)
  Receive Date: 20250307
  Receipt Date: 20250307
  Transmission Date: 20250409
  Serious: Yes (Other)
  Sender: PFIZER
  Company Number: JP-PFIZER INC-PV202500025969

PATIENT
  Age: 78 Year
  Sex: Female

DRUGS (2)
  1. CORTRIL [Suspect]
     Active Substance: HYDROCORTISONE
     Indication: Adrenal insufficiency
     Dates: start: 2020
  2. HERBAL NOS [Concomitant]
     Active Substance: HERBALS
     Indication: Adrenal insufficiency
     Dates: start: 2020

REACTIONS (1)
  - Cushing^s syndrome [Recovering/Resolving]

NARRATIVE: CASE EVENT DATE: 20240901
